FAERS Safety Report 20554808 (Version 20)
Quarter: 2024Q4

REPORT INFORMATION
  Report Type: Spontaneous
  Country: US (occurrence: US)
  Receive Date: 20220304
  Receipt Date: 20241211
  Transmission Date: 20250114
  Serious: Yes (Hospitalization, Other)
  Sender: PFIZER
  Company Number: US-PFIZER INC-2016206251

PATIENT
  Age: 50 Year
  Sex: Female

DRUGS (1)
  1. PREMARIN [Suspect]
     Active Substance: ESTROGENS, CONJUGATED
     Indication: Menopause
     Dosage: TAKE 1 TABLET BY MOUTH IN THE MORNING
     Route: 048
     Dates: start: 2001

REACTIONS (13)
  - Illness [Unknown]
  - Neuropathy peripheral [Unknown]
  - Constipation [Unknown]
  - Abdominal pain [Unknown]
  - Anxiety [Unknown]
  - Depression [Unknown]
  - Withdrawal syndrome [Unknown]
  - Grief reaction [Unknown]
  - Nausea [Unknown]
  - Malaise [Unknown]
  - Tremor [Unknown]
  - Intentional product misuse [Unknown]
  - Product prescribing error [Unknown]

NARRATIVE: CASE EVENT DATE: 20200101
